FAERS Safety Report 6155464-2 (Version None)
Quarter: 2009Q2

REPORT INFORMATION
  Report Type: 
  Country: None (occurrence: None)
  Receive Date: 20090415
  Receipt Date: 20090410
  Transmission Date: 20091009
  Serious: Yes (Other)
  Sender: FDA-Public Use
  Company Number: PHHY2009JP12426

PATIENT
  Age: 64 Year
  Sex: Female

DRUGS (1)
  1. ZOMETA [Suspect]
     Indication: BREAST CANCER
     Route: 042

REACTIONS (2)
  - OSTEONECROSIS [None]
  - TOOTH EXTRACTION [None]
